FAERS Safety Report 20945027 (Version 4)
Quarter: 2022Q3

REPORT INFORMATION
  Report Type: Spontaneous
  Country: US (occurrence: US)
  Receive Date: 20220610
  Receipt Date: 20220722
  Transmission Date: 20221027
  Serious: No
  Sender: FDA-Public Use
  Company Number: US-LUPIN PHARMACEUTICALS INC.-2022-08296

PATIENT
  Age: 66 Year
  Sex: Female

DRUGS (1)
  1. CLOBETASOL PROPIONATE [Suspect]
     Active Substance: CLOBETASOL PROPIONATE
     Indication: Pruritus
     Dosage: UNK (SOMETIMES USES DAILY, SOMETIMES EVERY OTHER DAY AND SOMETIMES THE THIRD DAY, AS NEEDED)
     Route: 061

REACTIONS (3)
  - Poor quality product administered [Unknown]
  - Product packaging issue [Unknown]
  - No adverse event [Unknown]
